FAERS Safety Report 4656093-X (Version None)
Quarter: 2005Q2

REPORT INFORMATION
  Report Type: 
  Country: None (occurrence: None)
  Receive Date: 20050509
  Receipt Date: 20050308
  Transmission Date: 20051028
  Serious: Yes (Death, Hospitalization)
  Sender: FDA-Public Use
  Company Number: DE-AMGEN-UK119903

PATIENT
  Sex: Female

DRUGS (4)
  1. ARANESP [Suspect]
     Indication: ANAEMIA OF MALIGNANT DISEASE
     Route: 065
     Dates: end: 20041201
  2. DOCETAXEL [Suspect]
  3. DOXORUBICIN HYDROCHLORIDE [Suspect]
  4. CYCLOPHOSPHAMIDE [Suspect]

REACTIONS (18)
  - ABDOMINAL ADHESIONS [None]
  - ADHESION [None]
  - ANTHRAX [None]
  - BACK PAIN [None]
  - BRAIN OEDEMA [None]
  - BREAST CANCER METASTATIC [None]
  - GASTRIC OUTLET OBSTRUCTION [None]
  - HAEMORRHAGE [None]
  - HEPATIC FAILURE [None]
  - HEPATOCELLULAR DAMAGE [None]
  - HEPATOMEGALY [None]
  - LEIOMYOMA [None]
  - LUNG DISORDER [None]
  - NAUSEA [None]
  - PNEUMONIA [None]
  - PULMONARY CONGESTION [None]
  - RESUSCITATION [None]
  - VOMITING [None]
